FAERS Safety Report 5033057-8 (Version None)
Quarter: 2006Q2

REPORT INFORMATION
  Report Type: 
  Country: None (occurrence: None)
  Receive Date: 20060622
  Receipt Date: 20060614
  Transmission Date: 20061013
  Serious: Yes (Hospitalization)
  Sender: FDA-Public Use
  Company Number: US-ROCHE-451972

PATIENT
  Age: 62 Year
  Sex: Female

DRUGS (4)
  1. PEGASYS [Suspect]
     Route: 065
     Dates: start: 20050929, end: 20060610
  2. RIBAVIRIN [Suspect]
     Route: 065
     Dates: start: 20050929, end: 20060613
  3. PROCRIT [Concomitant]
     Dates: start: 20060315
  4. NEUPOGEN [Concomitant]
     Dates: start: 20060315

REACTIONS (7)
  - ASTHENIA [None]
  - DRUG EFFECT DECREASED [None]
  - FATIGUE [None]
  - HYPOKALAEMIA [None]
  - LOSS OF CONSCIOUSNESS [None]
  - MYALGIA [None]
  - WEIGHT DECREASED [None]
